FAERS Safety Report 14912413 (Version 1)
Quarter: 2018Q2

REPORT INFORMATION
  Report Type: Spontaneous
  Country: DK (occurrence: DK)
  Receive Date: 20180518
  Receipt Date: 20180518
  Transmission Date: 20180711
  Serious: Yes (Hospitalization)
  Sender: FDA-Public Use
  Company Number: DK-009507513-1805DNK004116

PATIENT
  Age: 63 Year
  Sex: Female

DRUGS (12)
  1. LACTULOSE. [Concomitant]
     Active Substance: LACTULOSE
     Indication: CONSTIPATION
     Dosage: STRENGTH 667 MG/MILLILITER (ML) DOSE: 15 ML AS NECESSARY, MAXIMUM ONCE DAILY
     Route: 048
     Dates: start: 20171010
  2. EPINEPHRINE. [Concomitant]
     Active Substance: EPINEPHRINE
     Indication: HYPERSENSITIVITY
     Dosage: STRENGTH 1 MG/ML DOSE: 1 ML AS NECESSARY, MAXIMUM ONCE DAILY
     Route: 030
     Dates: start: 20171201
  3. DOMPERIDONE [Concomitant]
     Active Substance: DOMPERIDONE
     Indication: NAUSEA
     Dosage: STRENGTH 10 MG
     Route: 048
     Dates: start: 20171109
  4. ALENDRONIC ACID [Concomitant]
     Active Substance: ALENDRONIC ACID
     Indication: OSTEOPOROSIS
     Dosage: STRENGTH 70 MG
     Route: 048
     Dates: start: 20120227
  5. MORPHINE [Concomitant]
     Active Substance: MORPHINE
     Indication: PAIN
     Dosage: STRENGTH 10 MG. DOSE: ONE TABLE AS NECESSARY, MAXIMUM SIX TIMES DAILY
     Route: 048
     Dates: start: 20171115
  6. POTASSIUM CHLORIDE. [Concomitant]
     Active Substance: POTASSIUM CHLORIDE
     Indication: HYPOKALAEMIA
     Dosage: STRENGTH 750 MG
     Route: 048
     Dates: start: 20171117
  7. KEYTRUDA [Suspect]
     Active Substance: PEMBROLIZUMAB
     Dosage: 50 MG.
     Route: 042
     Dates: start: 20171013
  8. CALCIUM (UNSPECIFIED) (+) VITAMIN D (UNSPECIFIED) [Concomitant]
     Active Substance: CALCIUM CARBONATE\VITAMIN D
     Indication: VITAMIN SUPPLEMENTATION
     Dosage: STRENGTH 500 MG +10 MICROGRAMS (MCG)
     Route: 048
     Dates: start: 20171009
  9. APIXABAN [Concomitant]
     Active Substance: APIXABAN
     Indication: THROMBOSIS PROPHYLAXIS
     Dosage: STRENGTH 5 MG
     Route: 048
     Dates: start: 20171121
  10. METFORMIN [Concomitant]
     Active Substance: METFORMIN HYDROCHLORIDE
     Indication: TYPE 2 DIABETES MELLITUS
     Dosage: STRENGTH 500 MG.
     Route: 048
     Dates: start: 20171110
  11. ONDANSETRON [Concomitant]
     Active Substance: ONDANSETRON
     Indication: NAUSEA
     Dosage: STRENGTH 8 MG. DOSE: ONE TABLET AS NECESSARY, MAXIMUM TWICE DAILY
     Route: 048
     Dates: start: 20171115
  12. INSULIN ASPART [Concomitant]
     Active Substance: INSULIN ASPART
     Indication: DIABETES MELLITUS
     Dosage: STRENGTH 100 UNITS/ML. DOSE: 2 UNITS AS NECESSARY, MAXIMUM SIX TIMES DAILY
     Route: 058
     Dates: start: 20170709

REACTIONS (3)
  - Muscular weakness [Recovered/Resolved]
  - Dysarthria [Recovered/Resolved]
  - Cerebrovascular accident [Recovered/Resolved]

NARRATIVE: CASE EVENT DATE: 20180320
